FAERS Safety Report 7664907-4 (Version None)
Quarter: 2011Q3

REPORT INFORMATION
  Report Type: 
  Country: None (occurrence: None)
  Receive Date: 20110806
  Receipt Date: 20110323
  Transmission Date: 20111222
  Serious: No
  Sender: FDA-Public Use
  Company Number: US-ABBOTT-09P-163-0498435-00

PATIENT
  Sex: Male

DRUGS (8)
  1. AMBIEN [Concomitant]
     Indication: INSOMNIA
     Dates: start: 20090117
  2. ASPIRIN [Concomitant]
     Dates: start: 20090101
  3. NIASPAN [Suspect]
     Indication: LOW DENSITY LIPOPROTEIN INCREASED
     Dates: start: 20090101, end: 20090113
  4. NIASPAN [Suspect]
     Dosage: 500 MG AT LUNCH AND 500 MG AT BEDTIME
     Dates: start: 20090113
  5. LIPITOR [Concomitant]
     Indication: PRODUCT USED FOR UNKNOWN INDICATION
  6. NIASPAN [Suspect]
     Indication: HIGH DENSITY LIPOPROTEIN DECREASED
     Dosage: EVERY NIGHT
     Dates: start: 20081201
  7. ASPIRIN [Concomitant]
     Indication: PRODUCT USED FOR UNKNOWN INDICATION
     Dates: start: 20081201, end: 20090101
  8. PLAVIX [Concomitant]
     Indication: PRODUCT USED FOR UNKNOWN INDICATION

REACTIONS (5)
  - SLEEP DISORDER [None]
  - PARAESTHESIA [None]
  - FLUSHING [None]
  - BURNING SENSATION [None]
  - FEELING JITTERY [None]
